FAERS Safety Report 16866687 (Version 1)
Quarter: 2019Q3

REPORT INFORMATION
  Report Type: Spontaneous
  Country: CA (occurrence: CA)
  Receive Date: 20190930
  Receipt Date: 20190930
  Transmission Date: 20191005
  Serious: Yes (Other)
  Sender: FDA-Public Use
  Company Number: PHHY2019CA223477

PATIENT
  Sex: Female

DRUGS (2)
  1. ACETYLSALICYLIC ACID [Suspect]
     Active Substance: ASPIRIN
     Indication: MAST CELL ACTIVATION SYNDROME
     Dosage: UNK
     Route: 065
  2. ZADITEN [Suspect]
     Active Substance: KETOTIFEN FUMARATE
     Indication: MAST CELL ACTIVATION SYNDROME
     Dosage: UNK
     Route: 065

REACTIONS (1)
  - Treatment failure [Unknown]
